FAERS Safety Report 24110258 (Version 1)
Quarter: 2024Q3

REPORT INFORMATION
  Report Type: Spontaneous
  Country: US (occurrence: US)
  Receive Date: 20240718
  Receipt Date: 20240718
  Transmission Date: 20241016
  Serious: No
  Sender: LUPIN
  Company Number: US-LUPIN PHARMACEUTICALS INC.-2024-06525

PATIENT

DRUGS (1)
  1. BUPROPION HYDROCHLORIDE [Suspect]
     Active Substance: BUPROPION HYDROCHLORIDE
     Indication: Product used for unknown indication
     Dosage: UNK
     Route: 065

REACTIONS (7)
  - Tinnitus [Unknown]
  - Feeling abnormal [Unknown]
  - Chills [Unknown]
  - Bruxism [Unknown]
  - Limb discomfort [Unknown]
  - Emotional disorder [Unknown]
  - Product substitution issue [Unknown]
